FAERS Safety Report 6842752-7 (Version None)
Quarter: 2010Q3

REPORT INFORMATION
  Report Type: 
  Country: None (occurrence: None)
  Receive Date: 20100714
  Receipt Date: 20070802
  Transmission Date: 20110219
  Serious: No
  Sender: FDA-Public Use
  Company Number: US-PFIZER INC-2007065891

PATIENT
  Sex: Female

DRUGS (3)
  1. CHANTIX [Suspect]
     Indication: SMOKING CESSATION THERAPY
     Dates: start: 20070201, end: 20070401
  2. PREDNISONE [Suspect]
     Indication: LUNG DISORDER
     Dates: start: 20061201
  3. BIOTIN [Concomitant]

REACTIONS (5)
  - ABDOMINAL DISTENSION [None]
  - ALOPECIA [None]
  - CUSHINGOID [None]
  - SKIN PAPILLOMA [None]
  - WEIGHT INCREASED [None]
